FAERS Safety Report 18150903 (Version 1)
Quarter: 2020Q3

REPORT INFORMATION
  Report Type: Report from Study
  Country: US (occurrence: US)
  Receive Date: 20200814
  Receipt Date: 20200814
  Transmission Date: 20201103
  Serious: Yes (Death, Hospitalization, Other)
  Sender: FDA-Public Use
  Company Number: US-ASTRAZENECA-2020SF01673

PATIENT
  Age: 31605 Day
  Sex: Female

DRUGS (1)
  1. TAGRISSO [Suspect]
     Active Substance: OSIMERTINIB
     Indication: LUNG NEOPLASM MALIGNANT
     Route: 048

REACTIONS (9)
  - Headache [Unknown]
  - Illness [Unknown]
  - Photophobia [Unknown]
  - Muscular weakness [Unknown]
  - Vascular occlusion [Unknown]
  - Eye irritation [Unknown]
  - Death [Fatal]
  - Gastrointestinal disorder [Not Recovered/Not Resolved]
  - Feeding disorder [Unknown]

NARRATIVE: CASE EVENT DATE: 20200806
